FAERS Safety Report 4707992-1 (Version None)
Quarter: 2005Q3

REPORT INFORMATION
  Report Type: 
  Country: None (occurrence: None)
  Receive Date: 20050707
  Receipt Date: 20050627
  Transmission Date: 20060218
  Serious: Yes (Other)
  Sender: FDA-Public Use
  Company Number: PHEH2005US07239

PATIENT
  Age: 67 Year
  Sex: Female
  Weight: 77 kg

DRUGS (2)
  1. PAMIDRONATE DISODIUM [Suspect]
     Indication: BREAST CANCER
  2. FASLODEX [Concomitant]

REACTIONS (3)
  - ASEPTIC NECROSIS BONE [None]
  - PAIN IN JAW [None]
  - TOOTH EXTRACTION [None]
